FAERS Safety Report 20799159 (Version 1)
Quarter: 2022Q2

REPORT INFORMATION
  Report Type: Report from Study
  Country: US (occurrence: US)
  Receive Date: 20220508
  Receipt Date: 20220508
  Transmission Date: 20220721
  Serious: Yes (Death, Hospitalization, Other)
  Sender: FDA-Public Use
  Company Number: US-BRISTOL-MYERS SQUIBB COMPANY-2022-034263

PATIENT
  Age: 80 Year
  Sex: Female
  Weight: 54.6 kg

DRUGS (4)
  1. IPILIMUMAB [Suspect]
     Active Substance: IPILIMUMAB
     Indication: Malignant melanoma
     Route: 065
     Dates: start: 201707, end: 20170727
  2. NIVOLUMAB [Suspect]
     Active Substance: NIVOLUMAB
     Indication: Malignant melanoma
     Dates: start: 201707, end: 20171207
  3. DABRAFENIB [Suspect]
     Active Substance: DABRAFENIB
     Indication: Malignant melanoma
     Route: 048
     Dates: start: 20180628, end: 20180808
  4. TRAMETINIB [Suspect]
     Active Substance: TRAMETINIB
     Indication: Malignant melanoma
     Route: 048
     Dates: start: 20180628, end: 20180808

REACTIONS (12)
  - Death [Fatal]
  - Cardiac failure chronic [Unknown]
  - Respiratory failure [Unknown]
  - Diarrhoea [Unknown]
  - Asthenia [Unknown]
  - Hyperkalaemia [Unknown]
  - Hyponatraemia [Unknown]
  - Hypotension [Unknown]
  - Nausea [Unknown]
  - Vomiting [Unknown]
  - Pleural effusion [Unknown]
  - Fatigue [Unknown]

NARRATIVE: CASE EVENT DATE: 20180818
